FAERS Safety Report 17261981 (Version 1)
Quarter: 2020Q1

REPORT INFORMATION
  Report Type: Spontaneous
  Country: FR (occurrence: FR)
  Receive Date: 20200113
  Receipt Date: 20200113
  Transmission Date: 20200409
  Serious: Yes (Other)
  Sender: FDA-Public Use
  Company Number: FR-PFIZER INC-2020010240

PATIENT
  Age: 1 Year
  Sex: Male
  Weight: 13.4 kg

DRUGS (8)
  1. ZOPHREN [ONDANSETRON HYDROCHLORIDE] [Suspect]
     Active Substance: ONDANSETRON
     Indication: NAUSEA
     Dosage: UNK
     Route: 065
     Dates: start: 20191113
  2. FOLINIC ACID [Suspect]
     Active Substance: LEUCOVORIN
     Indication: DRUG TOXICITY PROPHYLAXIS
     Dosage: UNK
     Route: 048
     Dates: start: 20191113
  3. PLITICAN [Suspect]
     Active Substance: ALIZAPRIDE HYDROCHLORIDE
     Indication: VOMITING
     Dosage: UNK
     Route: 042
     Dates: start: 20191113
  4. VINCRISTINE SULFATE. [Suspect]
     Active Substance: VINCRISTINE SULFATE
     Indication: MEDULLOBLASTOMA
     Dosage: 0.85 MG, 1X/DAY
     Route: 051
     Dates: start: 20191113, end: 20191113
  5. METHOTREXATE SODIUM. [Suspect]
     Active Substance: METHOTREXATE SODIUM
     Indication: MEDULLOBLASTOMA
     Dosage: 2780 MG, SINGLE
     Route: 051
     Dates: start: 20191113, end: 20191113
  6. TIORFAN [Suspect]
     Active Substance: RACECADOTRIL
     Indication: DIARRHOEA
     Dosage: UNK
     Route: 048
     Dates: start: 20191112, end: 20191113
  7. FLAGYL [METRONIDAZOLE BENZOATE] [Suspect]
     Active Substance: METRONIDAZOLE BENZOATE
     Indication: INFECTION
     Dosage: 420 MG, 1X/DAY
     Route: 048
     Dates: start: 20191112, end: 20191115
  8. FLIXOTIDE [Concomitant]
     Active Substance: FLUTICASONE PROPIONATE
     Dosage: 2 DF, 1X/DAY
     Route: 055

REACTIONS (1)
  - Hepatocellular injury [Recovering/Resolving]

NARRATIVE: CASE EVENT DATE: 20191115
